FAERS Safety Report 4608327-5 (Version None)
Quarter: 2005Q2

REPORT INFORMATION
  Report Type: 
  Country: None (occurrence: None)
  Receive Date: 20050301
  Receipt Date: 20040415
  Transmission Date: 20051028
  Serious: Yes (Other)
  Sender: FDA-Public Use
  Company Number: BDI-006048

PATIENT
  Age: 40 Year
  Sex: Female

DRUGS (2)
  1. ISOVUE-300 [Suspect]
     Indication: COMPUTERISED TOMOGRAM THORAX
     Dosage: IV
     Route: 042
     Dates: start: 20040415, end: 20040415
  2. ISOVUE-300 [Suspect]
     Indication: COUGH
     Dosage: IV
     Route: 042
     Dates: start: 20040415, end: 20040415

REACTIONS (1)
  - ANAPHYLACTOID REACTION [None]
